FAERS Safety Report 8351257-6 (Version None)
Quarter: 2012Q2

REPORT INFORMATION
  Report Type: 
  Country: None (occurrence: None)
  Receive Date: 20120510
  Receipt Date: 20120508
  Transmission Date: 20120825
  Serious: Yes (Death, Hospitalization, Other)
  Sender: FDA-Public Use
  Company Number: CA-ABBOTT-11P-028-0837628-00

PATIENT
  Sex: Male
  Weight: 69.462 kg

DRUGS (5)
  1. TRUVADA [Concomitant]
     Indication: PRODUCT USED FOR UNKNOWN INDICATION
     Dosage: 200 MG/300 MG; ONCE DAILY
     Route: 048
  2. KALETRA [Suspect]
     Indication: ANTIRETROVIRAL THERAPY
     Dosage: 200 MG/50 MG, 2 TABS ONCE DAILY
     Route: 048
     Dates: start: 19890101
  3. PANTOPRAZOLE SODIUM [Concomitant]
     Indication: PRODUCT USED FOR UNKNOWN INDICATION
     Dosage: 40 MG DAILY
  4. DIFLUCAN [Concomitant]
     Indication: PRODUCT USED FOR UNKNOWN INDICATION
     Dosage: 100 MG DAILY
  5. SEPTRA DS [Concomitant]
     Indication: PRODUCT USED FOR UNKNOWN INDICATION

REACTIONS (6)
  - OESOPHAGEAL SQUAMOUS CELL CARCINOMA METASTATIC [None]
  - OESOPHAGEAL STENOSIS [None]
  - OESOPHAGEAL PERFORATION [None]
  - LUNG NEOPLASM MALIGNANT [None]
  - ABDOMINAL PAIN UPPER [None]
  - DYSPEPSIA [None]
